FAERS Safety Report 19907696 (Version 9)
Quarter: 2022Q1

REPORT INFORMATION
  Report Type: Report from Study
  Country: TR (occurrence: TR)
  Receive Date: 20210930
  Receipt Date: 20220225
  Transmission Date: 20220423
  Serious: Yes (Life-Threatening, Hospitalization)
  Sender: FDA-Public Use
  Company Number: TR-ABBVIE-21P-161-4099341-00

PATIENT
  Age: 72 Year
  Sex: Male
  Weight: 72 kg

DRUGS (22)
  1. VENETOCLAX [Suspect]
     Active Substance: VENETOCLAX
     Indication: Myelodysplastic syndrome
     Dosage: 14 DAYS ON, 14 DAYS OFF
     Route: 048
     Dates: start: 20210426, end: 20210606
  2. VENETOCLAX [Suspect]
     Active Substance: VENETOCLAX
     Dosage: 14 DAYS ON, 14 DAYS OFF
     Route: 048
     Dates: start: 20210618, end: 20210919
  3. VENETOCLAX [Suspect]
     Active Substance: VENETOCLAX
     Dosage: 14 DAYS ON, 14 DAYS OFF
     Route: 048
     Dates: start: 20211108
  4. AZACITIDINE [Suspect]
     Active Substance: AZACITIDINE
     Indication: Myelodysplastic syndrome
     Dosage: 7 DAYS WITHIN THE FIRST 9 DAYS PER 28 DAY CYCLE
     Route: 058
     Dates: start: 20210426, end: 20210914
  5. AZACITIDINE [Suspect]
     Active Substance: AZACITIDINE
     Dosage: 7 DAYS WITHIN THE FIRST 9 DAYS PER 28 DAY CYCLE
     Route: 058
     Dates: start: 20211108
  6. VALTREX [Concomitant]
     Active Substance: VALACYCLOVIR HYDROCHLORIDE
     Indication: Infection prophylaxis
     Route: 048
     Dates: start: 20210426
  7. TANFLEX GARGARA [Concomitant]
     Indication: Prophylaxis
     Route: 048
     Dates: start: 20210426
  8. FLUCONAZOLE [Concomitant]
     Active Substance: FLUCONAZOLE
     Indication: Infection prophylaxis
     Route: 048
     Dates: start: 20210426, end: 20211004
  9. CARVEDILOL [Concomitant]
     Active Substance: CARVEDILOL
     Indication: Myocardial infarction
     Route: 048
     Dates: start: 20210410
  10. DIGOXIN [Concomitant]
     Active Substance: DIGOXIN
     Indication: Myocardial infarction
     Route: 048
     Dates: start: 20210410
  11. INSPRA [Concomitant]
     Active Substance: EPLERENONE
     Indication: Myocardial infarction
     Route: 048
     Dates: start: 20210410
  12. PANTOPRAZOLE SODIUM [Concomitant]
     Active Substance: PANTOPRAZOLE SODIUM
     Indication: Gastrointestinal disorder prophylaxis
     Route: 048
     Dates: start: 20210410
  13. TAZERACIN [Concomitant]
     Indication: Neutropenia
     Route: 042
     Dates: start: 20210819, end: 20210827
  14. TAZERACIN [Concomitant]
     Route: 042
     Dates: start: 20210907, end: 20210917
  15. TAZERACIN [Concomitant]
     Route: 042
     Dates: start: 20210927, end: 20210928
  16. KYTRIL [Concomitant]
     Active Substance: GRANISETRON HYDROCHLORIDE
     Indication: Premedication
     Route: 042
     Dates: start: 20210426
  17. HIRUDOID FORTE [Concomitant]
     Indication: Subdural haemorrhage
     Route: 061
     Dates: start: 20210820
  18. GRONOSIT [Concomitant]
     Indication: Premedication
     Dosage: 3/3 MG/ML
     Route: 042
     Dates: start: 20210910
  19. BACTROBAN [Concomitant]
     Active Substance: MUPIROCIN\MUPIROCIN CALCIUM
     Indication: Rash
     Route: 061
     Dates: start: 20210910
  20. COSMETICS [Concomitant]
     Active Substance: COSMETICS
     Indication: Rash
     Route: 061
     Dates: start: 20210910
  21. LEVMONT TB [Concomitant]
     Indication: Infection prophylaxis
     Dosage: 5/10 MG
     Route: 048
     Dates: start: 20210901, end: 20211101
  22. LEVMONT TB [Concomitant]
     Indication: Antifungal prophylaxis

REACTIONS (4)
  - Sepsis [Recovered/Resolved]
  - Bacterial test positive [Recovered/Resolved]
  - Thrombocytopenia [Not Recovered/Not Resolved]
  - Pneumonia [Recovered/Resolved]

NARRATIVE: CASE EVENT DATE: 20210927
